FAERS Safety Report 7536044-0 (Version None)
Quarter: 2011Q2

REPORT INFORMATION
  Report Type: 
  Country: None (occurrence: None)
  Receive Date: 20110609
  Receipt Date: 20110601
  Transmission Date: 20111010
  Serious: Yes (Hospitalization)
  Sender: FDA-Public Use
  Company Number: KR-ASTELLAS-2011JP003701

PATIENT
  Age: 63 Year
  Sex: Female

DRUGS (5)
  1. L-DOPA+BENSERAZIDE [Concomitant]
     Dosage: UNK
     Route: 048
     Dates: start: 20070117
  2. MAGNESIUM OXIDE [Concomitant]
     Dosage: UNK
     Route: 048
     Dates: start: 20050914
  3. DOMPERIDONE MALEATE [Concomitant]
     Dosage: UNK
     Route: 048
     Dates: start: 20050725
  4. ROPINIROLE [Concomitant]
     Dosage: UNK
     Route: 065
     Dates: start: 20050725
  5. SOLIFENACIN SUCCINATE [Suspect]
     Indication: URINARY INCONTINENCE
     Dosage: 5 MG, UNKNOWN/D
     Route: 048
     Dates: start: 20110324, end: 20110420

REACTIONS (1)
  - TRANSITIONAL CELL CARCINOMA [None]
